FAERS Safety Report 8256159-1 (Version None)
Quarter: 2012Q1

REPORT INFORMATION
  Report Type: 
  Country: None (occurrence: None)
  Receive Date: 20120330
  Receipt Date: 20120315
  Transmission Date: 20120608
  Serious: Yes (Hospitalization, Other)
  Sender: FDA-Public Use
  Company Number: FK201200880

PATIENT
  Age: 64 Year
  Sex: Male

DRUGS (5)
  1. VITAMIN B12 [Concomitant]
  2. METHOTREXATE [Suspect]
     Indication: PRODUCT USED FOR UNKNOWN INDICATION
     Dosage: 15;5 MG, 1 IN 1 WK,1 IN 8 WK,  INTRAVENOUS
     Route: 042
     Dates: start: 20120101
  3. REMICADE [Suspect]
     Indication: CROHN'S DISEASE
     Dosage: INTRAVENOUS
     Route: 042
     Dates: start: 20100401
  4. REMICADE [Suspect]
     Indication: CROHN'S DISEASE
     Dosage: INTRAVENOUS
     Route: 042
     Dates: start: 20120101
  5. FOLIC ACID [Concomitant]

REACTIONS (7)
  - RENAL FAILURE ACUTE [None]
  - LOWER RESPIRATORY TRACT INFECTION [None]
  - SPINAL COMPRESSION FRACTURE [None]
  - MONOCLONAL GAMMOPATHY [None]
  - HYPERPARATHYROIDISM PRIMARY [None]
  - HYPERCALCAEMIA [None]
  - OSTEOPOROSIS [None]
